FAERS Safety Report 21615117 (Version 2)
Quarter: 2022Q4

REPORT INFORMATION
  Report Type: Spontaneous
  Country: US (occurrence: US)
  Receive Date: 20221118
  Receipt Date: 20221201
  Transmission Date: 20230113
  Serious: Yes (Hospitalization)
  Sender: FDA-Public Use
  Company Number: US-PFIZER INC-202201303252

PATIENT
  Age: 87 Year
  Sex: Male
  Weight: 77.11 kg

DRUGS (3)
  1. VYNDAMAX [Suspect]
     Active Substance: TAFAMIDIS
     Indication: Cardiac disorder
     Dosage: 61 MG, 1X/DAY
     Dates: start: 20220222
  2. VYNDAMAX [Suspect]
     Active Substance: TAFAMIDIS
     Indication: Aneurysm
  3. VYNDAMAX [Suspect]
     Active Substance: TAFAMIDIS
     Indication: Aortic aneurysm

REACTIONS (2)
  - Fall [Not Recovered/Not Resolved]
  - COVID-19 [Not Recovered/Not Resolved]

NARRATIVE: CASE EVENT DATE: 20221001
